FAERS Safety Report 12677517 (Version 1)
Quarter: 2016Q3

REPORT INFORMATION
  Report Type: Spontaneous
  Country: JP (occurrence: JP)
  Receive Date: 20160823
  Receipt Date: 20160823
  Transmission Date: 20161109
  Serious: Yes (Other)
  Sender: FDA-Public Use
  Company Number: JP-PFIZER INC-2016391357

PATIENT
  Age: 7 Decade
  Sex: Female

DRUGS (9)
  1. BETAMETHASONE. [Suspect]
     Active Substance: BETAMETHASONE
     Dosage: 1.5 MG, DAILY
  2. METHYLPREDNISOLONE SODIUM SUCCINATE. [Suspect]
     Active Substance: METHYLPREDNISOLONE SODIUM SUCCINATE
     Indication: PEMPHIGOID
     Dosage: 1 G, DAILY, CYCLIC FOR 3 DAYS
     Route: 042
  3. KENKETU GLOVENIN-I [Concomitant]
     Active Substance: HUMAN IMMUNOGLOBULIN G
     Dosage: 400 MG/KG, DAILY FOR 5 DAYS
  4. METHYLPREDNISOLONE. [Suspect]
     Active Substance: METHYLPREDNISOLONE
     Dosage: 24 MG, DAILY
  5. BETAMETHASONE. [Suspect]
     Active Substance: BETAMETHASONE
     Dosage: 5 MG, DAILY
  6. PREDNISOLONE. [Suspect]
     Active Substance: PREDNISOLONE
     Dosage: 50 MG, DAILY
     Route: 048
  7. CYCLOSPORINE. [Concomitant]
     Active Substance: CYCLOSPORINE
     Dosage: 100 MG, DAILY
  8. PREDNISOLONE. [Suspect]
     Active Substance: PREDNISOLONE
     Dosage: 60 MG, DAILY
     Route: 048
  9. BETAMETHASONE. [Suspect]
     Active Substance: BETAMETHASONE
     Dosage: 4.5 MG, DAILY

REACTIONS (4)
  - Diabetes mellitus [Unknown]
  - Pancreatic neoplasm [Unknown]
  - Myopathy [Unknown]
  - Cataract [Unknown]
